FAERS Safety Report 13831621 (Version 2)
Quarter: 2017Q3

REPORT INFORMATION
  Report Type: Report from Study
  Country: None (occurrence: US)
  Receive Date: 20170803
  Receipt Date: 20170926
  Transmission Date: 20171127
  Serious: Yes (Hospitalization)
  Sender: FDA-Public Use
  Company Number: US-ABBVIE-17P-163-2054281-00

PATIENT
  Age: 75 Year
  Sex: Female
  Weight: 57.1 kg

DRUGS (21)
  1. DA-EPOCH-R [Concomitant]
     Indication: B-CELL LYMPHOMA
     Route: 042
     Dates: start: 20170612
  2. PANTOPRAZOLE [Concomitant]
     Active Substance: PANTOPRAZOLE
     Indication: PRODUCT USED FOR UNKNOWN INDICATION
     Dosage: DELAYED RELEASE TABLET.
     Route: 048
  3. SENNA [Concomitant]
     Active Substance: SENNA LEAF\SENNOSIDES\SENNOSIDES A AND B
     Indication: PRODUCT USED FOR UNKNOWN INDICATION
     Route: 048
  4. DA-EPOCH-R [Concomitant]
     Indication: B-CELL LYMPHOMA
     Route: 048
     Dates: start: 20170612
  5. DA-EPOCH-R [Concomitant]
     Route: 042
     Dates: start: 20170703, end: 20170707
  6. SULFAMETHOXAZOLE-TRIMETHOPRIM [Concomitant]
     Active Substance: SULFAMETHOXAZOLE\TRIMETHOPRIM
     Indication: PRODUCT USED FOR UNKNOWN INDICATION
     Dosage: 800 MG-160 MG. TIW
     Route: 048
  7. VALACYCLOVIR [Concomitant]
     Active Substance: VALACYCLOVIR HYDROCHLORIDE
     Indication: PRODUCT USED FOR UNKNOWN INDICATION
     Route: 048
  8. DOCUSATE SODIUM. [Concomitant]
     Active Substance: DOCUSATE SODIUM
     Indication: PRODUCT USED FOR UNKNOWN INDICATION
     Dosage: EVERY 8 HOURS, PRN
     Route: 048
  9. ODANSETRON [Concomitant]
     Active Substance: ONDANSETRON
     Indication: PRODUCT USED FOR UNKNOWN INDICATION
     Dosage: EVERY 6 HOURS, PRN
     Route: 048
  10. DA-EPOCH-R [Concomitant]
     Route: 042
     Dates: start: 20170703, end: 20170707
  11. DA-EPOCH-R [Concomitant]
     Indication: B-CELL LYMPHOMA
     Route: 042
     Dates: start: 20170612
  12. DA-EPOCH-R [Concomitant]
     Route: 042
     Dates: start: 20170703, end: 20170707
  13. DA-EPOCH-R [Concomitant]
     Route: 048
     Dates: start: 20170703, end: 20170707
  14. ALLOPURINOL. [Concomitant]
     Active Substance: ALLOPURINOL
     Indication: PRODUCT USED FOR UNKNOWN INDICATION
     Route: 048
  15. DA-EPOCH-R [Concomitant]
     Indication: B-CELL LYMPHOMA
     Route: 042
     Dates: start: 20170612
  16. DA-EPOCH-R [Concomitant]
     Route: 042
     Dates: start: 20170703, end: 20170707
  17. PROCHLORPERAZINE. [Concomitant]
     Active Substance: PROCHLORPERAZINE
     Indication: PRODUCT USED FOR UNKNOWN INDICATION
     Dosage: EVERY 6 HOURS, PRN
     Route: 048
  18. VENETOCLAX. [Suspect]
     Active Substance: VENETOCLAX
     Indication: B-CELL LYMPHOMA
     Route: 048
     Dates: start: 20170703, end: 20170712
  19. DA-EPOCH-R [Concomitant]
     Indication: B-CELL LYMPHOMA
     Route: 042
     Dates: start: 20170612
  20. DA-EPOCH-R [Concomitant]
     Route: 042
     Dates: start: 20170703, end: 20170707
  21. DA-EPOCH-R [Concomitant]
     Indication: B-CELL LYMPHOMA
     Route: 042
     Dates: start: 20170612

REACTIONS (1)
  - Abscess [Not Recovered/Not Resolved]

NARRATIVE: CASE EVENT DATE: 20170724
